FAERS Safety Report 22238759 (Version 1)
Quarter: 2023Q2

REPORT INFORMATION
  Report Type: Spontaneous
  Country: ES (occurrence: ES)
  Receive Date: 20230421
  Receipt Date: 20230421
  Transmission Date: 20230721
  Serious: Yes (Other)
  Sender: FDA-Public Use
  Company Number: ALC2023ES002015

PATIENT

DRUGS (10)
  1. OLOPATADINE [Suspect]
     Active Substance: OLOPATADINE
     Indication: Conjunctivitis
     Dosage: 1.0 GTS, Q24H
     Dates: start: 20111027, end: 20230331
  2. NAPROXEN [Concomitant]
     Active Substance: NAPROXEN
     Indication: Product used for unknown indication
     Dosage: 550 MG
     Route: 065
     Dates: start: 20220203
  3. CHLORTHALIDONE [Concomitant]
     Active Substance: CHLORTHALIDONE
     Indication: Product used for unknown indication
     Dosage: 50 MG
     Route: 065
     Dates: start: 20130426
  4. METFORMIN HYDROCHLORIDE\VILDAGLIPTIN [Concomitant]
     Active Substance: METFORMIN HYDROCHLORIDE\VILDAGLIPTIN
     Indication: Product used for unknown indication
     Dosage: 50/1000 MG
     Route: 065
     Dates: start: 20110620
  5. SIMVASTATINA CINFA [Concomitant]
     Indication: Product used for unknown indication
     Dosage: 20 MG
     Route: 065
     Dates: start: 20170425
  6. ACULAR [Concomitant]
     Active Substance: KETOROLAC TROMETHAMINE
     Indication: Product used for unknown indication
     Dosage: 5 MG/ML
     Route: 065
     Dates: start: 20200716
  7. FERROUS SULFATE [Concomitant]
     Active Substance: FERROUS SULFATE
     Indication: Product used for unknown indication
     Dosage: 105 MG
     Route: 065
     Dates: start: 20160503
  8. FLUTICASONE FUROATE [Concomitant]
     Active Substance: FLUTICASONE FUROATE
     Indication: Product used for unknown indication
     Dosage: 27.5 UG
     Route: 065
     Dates: start: 20130717
  9. NEBIVOLOL HYDROCHLORIDE [Concomitant]
     Active Substance: NEBIVOLOL HYDROCHLORIDE
     Indication: Product used for unknown indication
     Dosage: 5 MG
     Route: 065
     Dates: start: 20080808
  10. IRBESARTAN CINFA [Concomitant]
     Indication: Product used for unknown indication
     Dosage: 75 MG
     Route: 065
     Dates: start: 20120519

REACTIONS (1)
  - Xerophthalmia [Not Recovered/Not Resolved]

NARRATIVE: CASE EVENT DATE: 20230331
